FAERS Safety Report 10248337 (Version 1)
Quarter: 2014Q2

REPORT INFORMATION
  Report Type: Spontaneous
  Country: US (occurrence: US)
  Receive Date: 20140620
  Receipt Date: 20140620
  Transmission Date: 20141212
  Serious: No
  Sender: FDA-Public Use
  Company Number: US-DRREDDYS-USA/USA/13/0029727

PATIENT
  Sex: Male

DRUGS (1)
  1. TACROLIMUS [Suspect]
     Indication: LUNG TRANSPLANT
     Route: 065

REACTIONS (2)
  - Fatigue [Recovered/Resolved]
  - Pulmonary function test abnormal [Recovered/Resolved]
